FAERS Safety Report 4526350-6 (Version None)
Quarter: 2004Q4

REPORT INFORMATION
  Report Type: 
  Country: None (occurrence: None)
  Receive Date: 20041210
  Receipt Date: 20041126
  Transmission Date: 20050328
  Serious: Yes (Death)
  Sender: FDA-Public Use
  Company Number: 210536

PATIENT
  Age: 71 Year
  Sex: Male
  Weight: 70 kg

DRUGS (9)
  1. AVASTIN [Suspect]
     Indication: COLORECTAL CANCER METASTATIC
     Dosage: 522 MG, Q3W, INTRAVENOUS
     Route: 042
     Dates: start: 20040804, end: 20041104
  2. OXALIPLATIN (OXALIPLATIN) [Concomitant]
  3. CAPECITABINE (CAPECITABINE) [Concomitant]
  4. TAMSULOSIN (TAMSULOSIN HYDROCHLORIDE) [Concomitant]
  5. CITALOPRAM [Concomitant]
  6. MIANSERIN (MIANSERIN HYDROCHLORIDE) [Concomitant]
  7. ALLOPURINOL [Concomitant]
  8. OMEPRAZOLE [Concomitant]
  9. LOPERAMIDE [Concomitant]

REACTIONS (16)
  - AORTIC ATHEROSCLEROSIS [None]
  - COLON CANCER RECURRENT [None]
  - CORONARY ARTERY ATHEROSCLEROSIS [None]
  - DEEP VEIN THROMBOSIS [None]
  - DIARRHOEA [None]
  - GASTRODUODENITIS [None]
  - GASTROINTESTINAL DISORDER [None]
  - GASTROINTESTINAL HAEMORRHAGE [None]
  - HYPERKERATOSIS [None]
  - INTESTINAL ISCHAEMIA [None]
  - METASTASES TO DIAPHRAGM [None]
  - MYOCARDIAL INFARCTION [None]
  - PULMONARY EMBOLISM [None]
  - RHINITIS [None]
  - THROMBOPHLEBITIS PELVIC VEIN [None]
  - VENTRICULAR HYPERTROPHY [None]
